FAERS Safety Report 12143341 (Version 6)
Quarter: 2016Q2

REPORT INFORMATION
  Report Type: Report from Study
  Country: SG (occurrence: SG)
  Receive Date: 20160304
  Receipt Date: 20160601
  Transmission Date: 20160815
  Serious: Yes (Life-Threatening, Hospitalization)
  Sender: FDA-Public Use
  Company Number: SG-ROCHE-1720835

PATIENT
  Age: 67 Year
  Sex: Female
  Weight: 62.1 kg

DRUGS (5)
  1. ATEZOLIZUMAB [Suspect]
     Active Substance: ATEZOLIZUMAB
     Indication: NEOPLASM
     Dosage: MOST RECENT DOSE PRIOR BACK PAIN: 18/FEB/2016, 800 MG AT 13:50?MOST RECENT DOSE PRIOR TO SEPSIS: 31/
     Route: 042
     Dates: start: 20160120
  2. COBIMETINIB [Suspect]
     Active Substance: COBIMETINIB
     Route: 048
     Dates: start: 20160331, end: 20160401
  3. COBIMETINIB [Suspect]
     Active Substance: COBIMETINIB
     Indication: NEOPLASM
     Dosage: MOST RECENT DOSE PRIOR TO SERIOUS ADVERSE EVENT OF BACK PAIN: 22/FEB/2016, 60 MG  AT 16.30?MOST RECE
     Route: 048
     Dates: start: 20160204
  4. ATEZOLIZUMAB [Suspect]
     Active Substance: ATEZOLIZUMAB
     Route: 042
     Dates: start: 20160331, end: 20160401
  5. COBIMETINIB [Suspect]
     Active Substance: COBIMETINIB
     Route: 048
     Dates: start: 20160414

REACTIONS (2)
  - Sepsis [Not Recovered/Not Resolved]
  - Back pain [Not Recovered/Not Resolved]

NARRATIVE: CASE EVENT DATE: 20160401
